FAERS Safety Report 20135703 (Version 2)
Quarter: 2021Q4

REPORT INFORMATION
  Report Type: Other
  Country: CN (occurrence: CN)
  Receive Date: 20211201
  Receipt Date: 20211210
  Transmission Date: 20220303
  Serious: Yes (Other)
  Sender: FDA-Public Use
  Company Number: CN-BoehringerIngelheim-2021-BI-139475

PATIENT

DRUGS (5)
  1. ALTEPLASE [Suspect]
     Active Substance: ALTEPLASE
     Indication: Cerebral infarction
     Dosage: 0.9MG/KG, AND THE TOTAL DOSE COULD NOT EXCEED 90MG. FIRST, 10% OF THE TOTAL DOSE WAS INJECTED BY IN
     Route: 042
  2. ALTEPLASE [Suspect]
     Active Substance: ALTEPLASE
     Dosage: THE REMAINING 90% WAS ADMINISTERED BY INTRAVENOUS DRIP, AND THE INFUSION WAS COMPLETED IN 60MIN.
     Route: 042
  3. ASPIRIN [Concomitant]
     Active Substance: ASPIRIN
     Indication: Product used for unknown indication
     Dosage: 0.1G/TIME
     Route: 048
  4. CLOPIDOGREL [Concomitant]
     Active Substance: CLOPIDOGREL BISULFATE
     Indication: Product used for unknown indication
     Route: 048
  5. CLOPIDOGREL [Concomitant]
     Active Substance: CLOPIDOGREL BISULFATE
     Route: 048

REACTIONS (2)
  - Haemorrhage intracranial [Unknown]
  - Off label use [Unknown]
